FAERS Safety Report 5480380-9 (Version None)
Quarter: 2007Q4

REPORT INFORMATION
  Report Type: 
  Country: None (occurrence: None)
  Receive Date: 20071009
  Receipt Date: 20071009
  Transmission Date: 20080405
  Serious: Yes (Other)
  Sender: FDA-Public Use
  Company Number: A0681220A

PATIENT
  Sex: Female

DRUGS (2)
  1. NICORETTE [Suspect]
     Indication: SMOKING CESSATION THERAPY
     Route: 002
     Dates: start: 20070829, end: 20070101
  2. CLONAZEPAM [Concomitant]
     Route: 048
     Dates: start: 20060101

REACTIONS (2)
  - SYNCOPE [None]
  - VAGINAL HAEMORRHAGE [None]
